FAERS Safety Report 8969469 (Version 2)
Quarter: 2013Q1

REPORT INFORMATION
  Report Type: Spontaneous
  Country: US (occurrence: US)
  Receive Date: 20121217
  Receipt Date: 20130121
  Transmission Date: 20140127
  Serious: No
  Sender: FDA-Public Use
  Company Number: US-BAYER-2012-129061

PATIENT
  Age: 63 Year
  Sex: Male

DRUGS (3)
  1. GADAVIST [Suspect]
     Indication: NUCLEAR MAGNETIC RESONANCE IMAGING ABDOMINAL
     Dosage: 10 ML, ONCE
     Dates: start: 20121206, end: 20121206
  2. GADAVIST [Suspect]
     Indication: PROSTATE CANCER
  3. GADAVIST [Suspect]
     Indication: RENAL CYST

REACTIONS (1)
  - Nausea [Recovered/Resolved]
